FAERS Safety Report 24977262 (Version 2)
Quarter: 2025Q1

REPORT INFORMATION
  Report Type: Spontaneous
  Country: BR (occurrence: BR)
  Receive Date: 20250217
  Receipt Date: 20250218
  Transmission Date: 20250408
  Serious: Yes (Death, Other)
  Sender: CHEPLAPHARM
  Company Number: BR-ROCHE-10000202101

PATIENT
  Age: 58 Year
  Sex: Female

DRUGS (4)
  1. CAPECITABINE [Suspect]
     Active Substance: CAPECITABINE
     Indication: Breast cancer
     Route: 048
     Dates: start: 20220406, end: 20220627
  2. PACLITAXEL [Suspect]
     Active Substance: PACLITAXEL
     Indication: Breast cancer
     Route: 042
     Dates: start: 20210316, end: 20210503
  3. PERJETA [Suspect]
     Active Substance: PERTUZUMAB
     Indication: Breast cancer
     Dosage: 15 NUMBER OF CYCLES PER REGIMEN
     Route: 042
     Dates: start: 20210205, end: 20220310
  4. HERCEPTIN [Suspect]
     Active Substance: TRASTUZUMAB
     Indication: Breast cancer
     Dosage: 17 CYCLES PER REGIMEN
     Route: 042
     Dates: start: 20210205, end: 20220627

REACTIONS (4)
  - Pancytopenia [Not Recovered/Not Resolved]
  - Pleural effusion [Fatal]
  - Pain [Unknown]
  - Dyspnoea [Unknown]

NARRATIVE: CASE EVENT DATE: 20210503
